FAERS Safety Report 9714180 (Version 1)
Quarter: 2013Q4

REPORT INFORMATION
  Report Type: Spontaneous
  Country: US (occurrence: US)
  Receive Date: 20131126
  Receipt Date: 20131126
  Transmission Date: 20140711
  Serious: No
  Sender: FDA-Public Use
  Company Number: US-GILEAD-2008-0019133

PATIENT
  Sex: Female
  Weight: 99.79 kg

DRUGS (9)
  1. LETAIRIS [Suspect]
     Indication: PULMONARY ARTERIAL HYPERTENSION
     Route: 048
     Dates: start: 20080806
  2. METHOTREXATE [Concomitant]
  3. EVISTA [Concomitant]
  4. PAXIL [Concomitant]
  5. TOPAMAX [Concomitant]
  6. PEPCID [Concomitant]
  7. ACIPHEX [Concomitant]
  8. FOLIC ACID [Concomitant]
  9. ASPIRIN [Concomitant]

REACTIONS (1)
  - Chest discomfort [None]
